FAERS Safety Report 19672110 (Version 1)
Quarter: 2021Q3

REPORT INFORMATION
  Report Type: Other
  Country: US (occurrence: US)
  Receive Date: 20210806
  Receipt Date: 20210806
  Transmission Date: 20211014
  Serious: Yes (Other)
  Sender: FDA-Public Use
  Company Number: US-APOTEX-2021AP031798

PATIENT
  Age: 65 Year
  Sex: Male

DRUGS (2)
  1. RANITIDINE TABLETS [Suspect]
     Active Substance: RANITIDINE HYDROCHLORIDE
     Indication: DYSPEPSIA
     Dosage: OTHER (TWICE DAILY FOR ANTIHISTAMINE EFFECT RECOMMENDED BY PHYSICIAN^S ASSISSTANT AND THE AS NEEDED
     Route: 065
     Dates: start: 201001, end: 201901
  2. RANITIDINE. [Suspect]
     Active Substance: RANITIDINE
     Indication: DYSPEPSIA
     Dosage: OTHER (SAME AS ABOVE: INITIALLY TWO PER DAY FOR ANTIHISTAMINE EFFECTS AND THEN AS NEEDED)
     Route: 065
     Dates: start: 201001, end: 201901

REACTIONS (1)
  - Bladder cancer [Not Recovered/Not Resolved]

NARRATIVE: CASE EVENT DATE: 20180101
